FAERS Safety Report 9391753 (Version 1)
Quarter: 2013Q3

REPORT INFORMATION
  Report Type: Spontaneous
  Country: FR (occurrence: FR)
  Receive Date: 20130709
  Receipt Date: 20130709
  Transmission Date: 20140515
  Serious: Yes (Life-Threatening, Other)
  Sender: FDA-Public Use
  Company Number: FR-BRISTOL-MYERS SQUIBB COMPANY-17316415

PATIENT
  Age: 66 Year
  Sex: 0

DRUGS (1)
  1. COAPROVEL TABS 300MG/ 25MG [Suspect]
     Dosage: 1DF=1 TABLET
     Route: 048
     Dates: start: 201204

REACTIONS (7)
  - Coma [Unknown]
  - Subileus [Unknown]
  - Myalgia [Unknown]
  - Dry mouth [Unknown]
  - Rash [Unknown]
  - Back pain [Unknown]
  - Burning sensation [Unknown]
